FAERS Safety Report 9692765 (Version 2)
Quarter: 2013Q4

REPORT INFORMATION
  Report Type: Spontaneous
  Country: US (occurrence: US)
  Receive Date: 20131118
  Receipt Date: 20131118
  Transmission Date: 20140711
  Serious: No
  Sender: FDA-Public Use
  Company Number: US-JNJFOC-20111103904

PATIENT
  Age: 52 Year
  Sex: Female
  Weight: 58.97 kg

DRUGS (6)
  1. DURAGESIC [Suspect]
     Indication: PAIN
     Dosage: 100 UG/HR AND 50 UG/HR
     Route: 062
     Dates: start: 201110
  2. DURAGESIC [Suspect]
     Indication: PAIN
     Dosage: 100 UG/HR AND 25 UG/HR (125) 100 AND 50 UG (150UG/HR)
     Route: 062
     Dates: start: 2008, end: 201110
  3. OXYCONTIN [Concomitant]
     Indication: PAIN
     Dosage: EVERY 4-6 HOURS AS NEEDED ORAL
     Route: 048
     Dates: start: 2008
  4. WELLBUTRIN [Concomitant]
     Indication: DEPRESSION
     Route: 048
     Dates: start: 2008
  5. WELLBUTRIN [Concomitant]
     Indication: PAIN
     Route: 048
     Dates: start: 2008
  6. IBUPROFEN [Concomitant]
     Indication: PAIN
     Dosage: AS NEEDED
     Route: 048
     Dates: start: 2007

REACTIONS (4)
  - Drug withdrawal syndrome [Recovered/Resolved]
  - Pain [Recovered/Resolved]
  - Product adhesion issue [Unknown]
  - Drug ineffective [Recovered/Resolved]
